FAERS Safety Report 17519452 (Version 2)
Quarter: 2020Q2

REPORT INFORMATION
  Report Type: Spontaneous
  Country: JP (occurrence: JP)
  Receive Date: 20200310
  Receipt Date: 20200408
  Transmission Date: 20200713
  Serious: Yes (Hospitalization, Disabling, Other)
  Sender: FDA-Public Use
  Company Number: JP-GLAXOSMITHKLINE-JP2017JPN051767

PATIENT
  Age: 15 Year
  Sex: Female
  Weight: 41 kg

DRUGS (5)
  1. IMIGRAN-T [Suspect]
     Active Substance: SUMATRIPTAN SUCCINATE
     Indication: MIGRAINE
     Dosage: UNK, 1D
     Route: 048
     Dates: start: 20180123
  2. CERVARIX [Concomitant]
     Active Substance: HUMAN PAPILLOMAVIRUS TYPE 16 L1 CAPSID PROTEIN RESIDUES 2-471 ANTIGEN\HUMAN PAPILLOMAVIRUS TYPE 18 L1 CAPSID PROTEIN RESIDUES 2-472 ANTIGEN
     Dates: start: 20121025, end: 20121025
  3. IMIGRAN-T [Suspect]
     Active Substance: SUMATRIPTAN SUCCINATE
     Indication: PAIN IN EXTREMITY
     Dosage: 50 MG
     Route: 048
  4. CERVARIX [Concomitant]
     Active Substance: HUMAN PAPILLOMAVIRUS TYPE 16 L1 CAPSID PROTEIN RESIDUES 2-471 ANTIGEN\HUMAN PAPILLOMAVIRUS TYPE 18 L1 CAPSID PROTEIN RESIDUES 2-472 ANTIGEN
     Indication: PROPHYLAXIS
     Dates: start: 20120925, end: 20120925
  5. CERVARIX [Suspect]
     Active Substance: HUMAN PAPILLOMAVIRUS TYPE 16 L1 CAPSID PROTEIN RESIDUES 2-471 ANTIGEN\HUMAN PAPILLOMAVIRUS TYPE 18 L1 CAPSID PROTEIN RESIDUES 2-472 ANTIGEN
     Indication: PROPHYLAXIS
     Dates: start: 20130325, end: 20130325

REACTIONS (46)
  - Pain [Not Recovered/Not Resolved]
  - Dizziness postural [Not Recovered/Not Resolved]
  - Photophobia [Not Recovered/Not Resolved]
  - Visual acuity reduced [Recovered/Resolved]
  - Joint range of motion decreased [Recovered/Resolved]
  - Parosmia [Recovered/Resolved]
  - Taste disorder [Recovered/Resolved]
  - Feeling abnormal [Not Recovered/Not Resolved]
  - Post vaccination syndrome [Not Recovered/Not Resolved]
  - Visual impairment [Not Recovered/Not Resolved]
  - Migraine [Not Recovered/Not Resolved]
  - Syncope [Recovered/Resolved]
  - Exercise tolerance decreased [Unknown]
  - Pain in extremity [Not Recovered/Not Resolved]
  - Memory impairment [Not Recovered/Not Resolved]
  - Hyperacusis [Not Recovered/Not Resolved]
  - Dyskinesia [Not Recovered/Not Resolved]
  - Fatigue [Not Recovered/Not Resolved]
  - Loss of consciousness [Recovered/Resolved]
  - Movement disorder [Recovered/Resolved]
  - Asthenia [Not Recovered/Not Resolved]
  - Peripheral coldness [Not Recovered/Not Resolved]
  - Diarrhoea [Not Recovered/Not Resolved]
  - Sleep disorder [Recovered/Resolved]
  - Abnormal sensation in eye [Not Recovered/Not Resolved]
  - Somnolence [Not Recovered/Not Resolved]
  - Eye pain [Not Recovered/Not Resolved]
  - Product use in unapproved indication [Unknown]
  - Abdominal pain [Recovered/Resolved]
  - Hypoaesthesia [Recovered/Resolved]
  - Musculoskeletal stiffness [Unknown]
  - Nausea [Not Recovered/Not Resolved]
  - Dysphonia [Recovered/Resolved]
  - Vision blurred [Not Recovered/Not Resolved]
  - Chest pain [Not Recovered/Not Resolved]
  - Tinnitus [Unknown]
  - Agitation [Recovered/Resolved]
  - Hypersensitivity [Recovered/Resolved]
  - Malaise [Recovered/Resolved]
  - Dizziness [Not Recovered/Not Resolved]
  - Dysmenorrhoea [Recovered/Resolved]
  - Restless legs syndrome [Not Recovered/Not Resolved]
  - Orthostatic intolerance [Not Recovered/Not Resolved]
  - Tremor [Unknown]
  - Decreased appetite [Not Recovered/Not Resolved]
  - Off label use [Unknown]

NARRATIVE: CASE EVENT DATE: 20130325
